FAERS Safety Report 15219407 (Version 1)
Quarter: 2018Q3

REPORT INFORMATION
  Report Type: Spontaneous
  Country: US (occurrence: US)
  Receive Date: 20180731
  Receipt Date: 20180731
  Transmission Date: 20181010
  Serious: Yes (Death)
  Sender: FDA-Public Use
  Company Number: US-ASTELLAS-2017US044726

PATIENT
  Age: 82 Year
  Sex: Male

DRUGS (1)
  1. XTANDI [Suspect]
     Active Substance: ENZALUTAMIDE
     Indication: PROSTATE CANCER
     Dosage: 160 MG, ONCE DAILY (4 CAPSULES)
     Route: 048
     Dates: start: 20171003

REACTIONS (7)
  - Death [Fatal]
  - Fatigue [Unknown]
  - Somnolence [Unknown]
  - Constipation [Unknown]
  - Asthenia [Unknown]
  - Rash [Unknown]
  - Pruritus generalised [Unknown]

NARRATIVE: CASE EVENT DATE: 201710
